FAERS Safety Report 10014262 (Version 5)
Quarter: 2014Q4

REPORT INFORMATION
  Report Type: Report from Study
  Country: US (occurrence: US)
  Receive Date: 20140317
  Receipt Date: 20141017
  Transmission Date: 20150528
  Serious: Yes (Hospitalization)
  Sender: FDA-Public Use
  Company Number: US-BIOGENIDEC-2014BI021982

PATIENT
  Age: 60 Year
  Sex: Female

DRUGS (9)
  1. NORVASC [Concomitant]
     Active Substance: AMLODIPINE BESYLATE
  2. PROVIGIL [Concomitant]
     Active Substance: MODAFINIL
  3. OMEGA-3 ACIDS [Concomitant]
     Active Substance: OMEGA-3 FATTY ACIDS
  4. LISINOPRIL. [Concomitant]
     Active Substance: LISINOPRIL
  5. TOPROL XL [Concomitant]
     Active Substance: METOPROLOL SUCCINATE
  6. AMPYRA [Concomitant]
     Active Substance: DALFAMPRIDINE
     Route: 048
  7. TECFIDERA [Suspect]
     Active Substance: DIMETHYL FUMARATE
     Indication: MULTIPLE SCLEROSIS
     Route: 048
     Dates: start: 20130610
  8. LEXAPRO [Concomitant]
     Active Substance: ESCITALOPRAM OXALATE
  9. EDARBI [Concomitant]
     Active Substance: AZILSARTAN KAMEDOXOMIL

REACTIONS (6)
  - Femoral neck fracture [Recovered/Resolved]
  - Fall [Recovered/Resolved]
  - Hip fracture [Unknown]
  - Multiple sclerosis relapse [Recovered/Resolved]
  - Feeling hot [Unknown]
  - Restlessness [Unknown]

NARRATIVE: CASE EVENT DATE: 201310
